FAERS Safety Report 21844034 (Version 1)
Quarter: 2023Q1

REPORT INFORMATION
  Report Type: Spontaneous
  Country: US (occurrence: US)
  Receive Date: 20230110
  Receipt Date: 20230110
  Transmission Date: 20230417
  Serious: Yes (Death)
  Sender: FDA-Public Use
  Company Number: US-Fresenius Medical Care Renal Therapies Group-FMC-2301-000014

PATIENT
  Age: 80 Year
  Sex: Male
  Weight: 69.52 kg

DRUGS (18)
  1. DELFLEX WITH DEXTROSE 1.5% LOW MAGNESIUM [Suspect]
     Active Substance: CALCIUM CHLORIDE\DEXTROSE\MAGNESIUM CHLORIDE\SODIUM CHLORIDE\SODIUM LACTATE
     Indication: End stage renal disease
     Dosage: 3 EXCHANGES, FILL VOLUME 2300 ML, LAST FILL VOLUME 2000 ML, CYCLER THERAPY VOLUME 8900 ML, TIME 10 H
     Route: 033
  2. DELFLEX WITH DEXTROSE 2.5% LOW MAGNESIUM [Suspect]
     Active Substance: CALCIUM CHLORIDE\DEXTROSE\MAGNESIUM CHLORIDE\SODIUM CHLORIDE\SODIUM LACTATE
     Indication: End stage renal disease
     Dosage: 3 EXCHANGES, FILL VOLUME 2300 ML, LAST FILL VOLUME 2000 ML, CYCLER THERAPY VOLUME 8900 ML, TIME 10 H
     Route: 033
  3. DELFLEX WITH DEXTROSE 4.25% [Suspect]
     Active Substance: CALCIUM CHLORIDE\DEXTROSE\MAGNESIUM CHLORIDE\SODIUM CHLORIDE\SODIUM LACTATE
     Indication: End stage renal disease
     Dosage: 3 EXCHANGES, FILL VOLUME 2300 ML, LAST FILL VOLUME 2000 ML, CYCLER THERAPY VOLUME 8900 ML, TIME 10 H
     Route: 033
  4. BANATROL PLUS [Concomitant]
     Dosage: 1 PACKET DAILY
  5. CALCIUM ACETATE [Concomitant]
     Active Substance: CALCIUM ACETATE
     Dosage: 667 MG TWO TABLETS TID
  6. CARVEDILOL [Concomitant]
     Active Substance: CARVEDILOL
     Dosage: 3.125 MG 1 TABLET BID
  7. CILOSTAZOL [Concomitant]
     Active Substance: CILOSTAZOL
     Dosage: 100 MG 1 TABLET BID
  8. DOCUSATE SODIUM [Concomitant]
     Active Substance: DOCUSATE SODIUM
     Dosage: 100 MG DAILY
  9. APIXABAN [Concomitant]
     Active Substance: APIXABAN
     Dosage: 5 MG BID
  10. FOLIC ACID [Concomitant]
     Active Substance: FOLIC ACID
     Dosage: 0.8 MG PO DAILY
  11. GENTAMICIN [Concomitant]
     Active Substance: GENTAMICIN
     Dosage: TOPICAL 0.1% SMALL AMOUNT DAILY
  12. HUMALOG [Concomitant]
     Active Substance: INSULIN LISPRO
     Dosage: 100 UNITS/ML 15 UNITS TID
  13. LANTUS [Concomitant]
     Active Substance: INSULIN GLARGINE
     Dosage: 100 UNITS/ML 60 UNITS EVERY NIGHT
  14. ATORVASTATIN [Concomitant]
     Active Substance: ATORVASTATIN
     Dosage: 40 MG PO DAILY
  15. NEPHRO VITE RX [Concomitant]
     Active Substance: ASCORBIC ACID\BIOTIN\CALCIUM PANTOTHENATE\CYANOCOBALAMIN\FOLIC ACID\NIACINAMIDE\PYRIDOXINE HYDROCHLO
     Dosage: 0.8 MG PO DAILY
  16. FAMOTIDINE [Concomitant]
     Active Substance: FAMOTIDINE
     Dosage: 40 MG PO DAILY
  17. RYTARY [Concomitant]
     Active Substance: CARBIDOPA\LEVODOPA
     Dosage: 23.75-95 MCG PO BID
  18. LEVOTHYROXINE [Concomitant]
     Active Substance: LEVOTHYROXINE
     Dosage: 112 MCG PO DAILY

REACTIONS (1)
  - Cardiac arrest [Fatal]
